FAERS Safety Report 11230604 (Version 1)
Quarter: 2015Q2

REPORT INFORMATION
  Report Type: Spontaneous
  Country: US (occurrence: None)
  Receive Date: 20150630
  Receipt Date: 20150630
  Transmission Date: 20150821
  Serious: No
  Sender: FDA-Public Use
  Company Number: None

PATIENT
  Age: 43 Year
  Sex: Female
  Weight: 63.5 kg

DRUGS (5)
  1. PARAGARD T 380A [Suspect]
     Active Substance: COPPER
     Indication: CONTRACEPTION
     Dates: start: 20081015, end: 20150622
  2. FISH OIL [Concomitant]
     Active Substance: FISH OIL
  3. VITAMIN FOR WOMEN [Concomitant]
  4. VITAMIN B [Concomitant]
     Active Substance: VITAMIN B
  5. MINI ASPIRIN [Concomitant]

REACTIONS (2)
  - Device breakage [None]
  - Medical device complication [None]

NARRATIVE: CASE EVENT DATE: 20150622
